FAERS Safety Report 7617567-2 (Version None)
Quarter: 2011Q3

REPORT INFORMATION
  Report Type: 
  Country: None (occurrence: None)
  Receive Date: 20110718
  Receipt Date: 20110705
  Transmission Date: 20111222
  Serious: Yes (Other)
  Sender: FDA-Public Use
  Company Number: CA-JNJFOC-20110202073

PATIENT
  Sex: Female
  Weight: 90 kg

DRUGS (11)
  1. BENADRYL [Concomitant]
     Indication: PREMEDICATION
     Route: 042
  2. HYDROCORTISONE [Concomitant]
     Indication: PREMEDICATION
  3. DICLECTIN [Concomitant]
  4. STRESS TABS [Concomitant]
     Route: 048
     Dates: start: 20101008, end: 20110503
  5. CALCIUM CARBONATE [Concomitant]
     Route: 048
     Dates: start: 20101008, end: 20110503
  6. PREGVIT [Concomitant]
     Route: 048
     Dates: start: 20101008, end: 20110503
  7. CELEXA [Concomitant]
     Route: 048
     Dates: start: 20090101
  8. ACETAMINOPHEN [Concomitant]
     Indication: PREMEDICATION
     Route: 048
  9. REMICADE [Suspect]
     Indication: CROHN'S DISEASE
     Route: 042
  10. PREDNISONE [Concomitant]
     Indication: PREMEDICATION
     Route: 048
  11. FOLIC ACID [Concomitant]
     Route: 048
     Dates: start: 20100415, end: 20110503

REACTIONS (3)
  - MATERNAL EXPOSURE DURING PREGNANCY [None]
  - PREMATURE DELIVERY [None]
  - PREGNANCY [None]
